FAERS Safety Report 4537542-4 (Version None)
Quarter: 2004Q4

REPORT INFORMATION
  Report Type: 
  Country: None (occurrence: None)
  Receive Date: 20041223
  Receipt Date: 20041014
  Transmission Date: 20050328
  Serious: Yes (Disabling)
  Sender: FDA-Public Use
  Company Number: DE-MERCK-0410DEU00472

PATIENT
  Age: 58 Year
  Sex: Male

DRUGS (3)
  1. VIOXX [Suspect]
     Indication: INTERVERTEBRAL DISC DISORDER
     Route: 048
     Dates: start: 19990101
  2. METOPROLOL [Concomitant]
     Route: 048
     Dates: start: 19990101
  3. ALLOPURINOL [Concomitant]
     Route: 048
     Dates: start: 19940101

REACTIONS (13)
  - BALANCE DISORDER [None]
  - CEREBRAL INFARCTION [None]
  - DISTURBANCE IN ATTENTION [None]
  - DIZZINESS [None]
  - ENCEPHALOPATHY [None]
  - HEADACHE [None]
  - HYPERTENSION [None]
  - IMPAIRED WORK ABILITY [None]
  - LACUNAR INFARCTION [None]
  - MEMORY IMPAIRMENT [None]
  - PARALYSIS [None]
  - STRESS SYMPTOMS [None]
  - VASCULAR ENCEPHALOPATHY [None]
